FAERS Safety Report 18037447 (Version 1)
Quarter: 2020Q3

REPORT INFORMATION
  Report Type: Spontaneous
  Country: US (occurrence: US)
  Receive Date: 20200717
  Receipt Date: 20200717
  Transmission Date: 20201103
  Serious: Yes (Other)
  Sender: FDA-Public Use
  Company Number: US-RECORDATI RARE DISEASES INC.-US-R13005-20-00046

PATIENT
  Age: 71 Year
  Sex: Female

DRUGS (2)
  1. TRANXENE [Suspect]
     Active Substance: CLORAZEPATE DIPOTASSIUM
     Indication: PANIC DISORDER
  2. TRANXENE [Suspect]
     Active Substance: CLORAZEPATE DIPOTASSIUM
     Indication: GENERALISED ANXIETY DISORDER
     Route: 048
     Dates: start: 1991

REACTIONS (7)
  - Frustration tolerance decreased [Not Recovered/Not Resolved]
  - Malaise [Not Recovered/Not Resolved]
  - Adverse drug reaction [Not Recovered/Not Resolved]
  - Anxiety [Not Recovered/Not Resolved]
  - Product formulation issue [Unknown]
  - Drug ineffective [Unknown]
  - Panic attack [Not Recovered/Not Resolved]

NARRATIVE: CASE EVENT DATE: 20200210
